FAERS Safety Report 9629921 (Version 1)
Quarter: 2013Q4

REPORT INFORMATION
  Report Type: Spontaneous
  Country: IT (occurrence: IT)
  Receive Date: 20131017
  Receipt Date: 20131017
  Transmission Date: 20140711
  Serious: Yes (Hospitalization)
  Sender: FDA-Public Use
  Company Number: IT-TEVA-437739ISR

PATIENT
  Age: 82 Year
  Sex: Male

DRUGS (3)
  1. FUROSEMIDE [Suspect]
     Indication: CARDIAC FAILURE
     Dosage: 500 MILLIGRAM DAILY;
     Route: 042
     Dates: start: 20130603, end: 20130607
  2. ENALAPRIL [Concomitant]
  3. METOLAZONE [Concomitant]

REACTIONS (1)
  - Renal failure acute [Recovering/Resolving]
